FAERS Safety Report 25199843 (Version 2)
Quarter: 2025Q4

REPORT INFORMATION
  Report Type: Report from Study
  Country: US (occurrence: US)
  Receive Date: 20250415
  Receipt Date: 20251002
  Transmission Date: 20260117
  Serious: Yes (Hospitalization, Other)
  Sender: ABBVIE
  Company Number: US-ABBVIE-6224114

PATIENT
  Age: 59 Year
  Sex: Male
  Weight: 106.59 kg

DRUGS (4)
  1. SKYRIZI [Suspect]
     Active Substance: RISANKIZUMAB-RZAA
     Indication: Crohn^s disease
     Dosage: LAST ADMIN DATE :2023
     Route: 058
     Dates: start: 20230418
  2. SKYRIZI [Suspect]
     Active Substance: RISANKIZUMAB-RZAA
     Route: 058
     Dates: start: 2024, end: 202503
  3. SKYRIZI [Suspect]
     Active Substance: RISANKIZUMAB-RZAA
     Route: 058
     Dates: start: 202504
  4. VITAMIN B12 [Concomitant]
     Active Substance: CYANOCOBALAMIN
     Indication: Product used for unknown indication

REACTIONS (14)
  - Cystitis [Recovered/Resolved]
  - Nephrolithiasis [Recovered/Resolved]
  - CSF volume decreased [Recovering/Resolving]
  - Abdominal discomfort [Recovering/Resolving]
  - Intervertebral disc displacement [Unknown]
  - Urethral stenosis [Recovered/Resolved]
  - Scar [Recovered/Resolved]
  - Basal cell carcinoma [Unknown]
  - Suicidal ideation [Recovering/Resolving]
  - Kidney infection [Recovered/Resolved]
  - Inguinal hernia [Recovered/Resolved]
  - Neuritis [Recovering/Resolving]
  - Pain in extremity [Recovering/Resolving]
  - Weight increased [Not Recovered/Not Resolved]

NARRATIVE: CASE EVENT DATE: 20230101
